FAERS Safety Report 19799656 (Version 1)
Quarter: 2021Q3

REPORT INFORMATION
  Report Type: Report from Study
  Country: FR (occurrence: FR)
  Receive Date: 20210907
  Receipt Date: 20210907
  Transmission Date: 20211014
  Serious: Yes (Hospitalization, Other)
  Sender: FDA-Public Use
  Company Number: FR-TAKEDA-FR201511800

PATIENT
  Age: 16 Year
  Sex: Male

DRUGS (4)
  1. IDURSULFASE [Suspect]
     Active Substance: IDURSULFASE
     Dosage: 0.56 MG/KG, 1X/WEEK
     Route: 041
     Dates: start: 20061228, end: 20080820
  2. IDURSULFASE [Suspect]
     Active Substance: IDURSULFASE
     Dosage: 1 MILLIGRAM/KILOGRAM, 1/WEEK
     Route: 042
     Dates: start: 20080919, end: 20150616
  3. IDURSULFASE [Suspect]
     Active Substance: IDURSULFASE
     Indication: MUCOPOLYSACCHARIDOSIS II
     Dosage: 1 MG/KG, 1X/WEEK
     Route: 041
     Dates: start: 20100210, end: 20150616
  4. IDURSULFASE [Suspect]
     Active Substance: IDURSULFASE
     Dosage: 0.75 MILLIGRAM/KILOGRAM, Q2WEEKS
     Route: 041
     Dates: start: 20150617

REACTIONS (1)
  - Gastric volvulus [Recovered/Resolved]

NARRATIVE: CASE EVENT DATE: 20150603
